FAERS Safety Report 5472478-6 (Version None)
Quarter: 2007Q4

REPORT INFORMATION
  Report Type: 
  Country: None (occurrence: None)
  Receive Date: 20071001
  Receipt Date: 20070926
  Transmission Date: 20080405
  Serious: Yes (Congenital Anomaly)
  Sender: FDA-Public Use
  Company Number: US-BRISTOL-MYERS SQUIBB COMPANY-13921481

PATIENT
  Age: 35 Year
  Sex: Female

DRUGS (4)
  1. EFAVIRENZ [Suspect]
     Indication: HIV INFECTION
     Route: 048
     Dates: end: 20070627
  2. COMBIVIR [Suspect]
     Indication: HIV INFECTION
     Route: 048
  3. VIRACEPT [Suspect]
     Indication: HIV INFECTION
     Route: 048
     Dates: start: 20070627, end: 20070627
  4. KALETRA [Suspect]
     Indication: HIV INFECTION
     Route: 048
     Dates: start: 20070913

REACTIONS (2)
  - CLEFT LIP AND PALATE [None]
  - PREGNANCY [None]
